FAERS Safety Report 21586846 (Version 1)
Quarter: 2022Q4

REPORT INFORMATION
  Report Type: Spontaneous
  Country: US (occurrence: None)
  Receive Date: 20221110
  Receipt Date: 20221110
  Transmission Date: 20230113
  Serious: No
  Sender: FDA-Public Use
  Company Number: None

PATIENT
  Age: 35 Year
  Sex: Female

DRUGS (1)
  1. LUPRON DEPOT [Suspect]
     Active Substance: LEUPROLIDE ACETATE
     Indication: Endometriosis
     Dosage: FREQUENCY : MONTHLY;?
     Route: 030
     Dates: start: 20220913

REACTIONS (3)
  - Wrong technique in device usage process [None]
  - Injection site discharge [None]
  - Product dose omission issue [None]

NARRATIVE: CASE EVENT DATE: 20221109
